FAERS Safety Report 9271828 (Version 2)
Quarter: 2013Q2

REPORT INFORMATION
  Report Type: Spontaneous
  Country: IR (occurrence: IR)
  Receive Date: 20130506
  Receipt Date: 20130522
  Transmission Date: 20140414
  Serious: Yes (Death, Life-Threatening)
  Sender: FDA-Public Use
  Company Number: IR-NOVOPROD-376697

PATIENT
  Age: 72 Year
  Sex: Female
  Weight: 80 kg

DRUGS (4)
  1. NOVORAPID FLEXPEN [Suspect]
     Indication: TYPE 2 DIABETES MELLITUS
     Dosage: 30 IU, TID
     Route: 065
  2. METFORMIN [Concomitant]
  3. GLIBENCLAMIDE [Concomitant]
  4. GLUTAZONE [Concomitant]

REACTIONS (3)
  - Pulmonary fibrosis [Fatal]
  - Loss of consciousness [Unknown]
  - Urinary incontinence [Unknown]
